FAERS Safety Report 6176568-4 (Version None)
Quarter: 2009Q2

REPORT INFORMATION
  Report Type: 
  Country: None (occurrence: None)
  Receive Date: 20090501
  Receipt Date: 20081010
  Transmission Date: 20091009
  Serious: Yes (Hospitalization)
  Sender: FDA-Public Use
  Company Number: US-ALEXION-A200800267

PATIENT

DRUGS (2)
  1. SOLIRIS [Suspect]
     Dosage: 900 MG, Q2W
     Route: 042
     Dates: start: 20080507, end: 20080903
  2. SOLIRIS [Suspect]
     Dosage: 900 MG, UNK
     Route: 042
     Dates: start: 20081001

REACTIONS (4)
  - HAEMOGLOBIN DECREASED [None]
  - ILEUS [None]
  - THROMBOCYTOPENIA [None]
  - URINARY TRACT INFECTION [None]
